FAERS Safety Report 4667493-6 (Version None)
Quarter: 2005Q2

REPORT INFORMATION
  Report Type: 
  Country: None (occurrence: None)
  Receive Date: 20050520
  Receipt Date: 20050513
  Transmission Date: 20051028
  Serious: Yes (Other)
  Sender: FDA-Public Use
  Company Number: 200514381GDDC

PATIENT
  Age: 72 Year
  Sex: Male
  Weight: 70 kg

DRUGS (7)
  1. CLEXANE [Suspect]
     Indication: PROPHYLAXIS
     Route: 058
     Dates: start: 20000420, end: 20000619
  2. VANCOMYCIN HYDROCHLORIDE [Suspect]
     Indication: ABSCESS
     Route: 041
     Dates: start: 20000420, end: 20000619
  3. VANCOMYCIN HYDROCHLORIDE [Suspect]
     Indication: CELLULITIS
     Route: 041
     Dates: start: 20000420, end: 20000619
  4. MEROPENEM [Suspect]
     Route: 042
     Dates: start: 20000420, end: 20000615
  5. CIPROFLOXACIN HCL [Concomitant]
  6. OMEPRAZOLE [Concomitant]
  7. PROPRANOLOL [Concomitant]

REACTIONS (2)
  - NEUTROPENIA [None]
  - THROMBOCYTOPENIA [None]
